FAERS Safety Report 9723021 (Version 1)
Quarter: 2013Q4

REPORT INFORMATION
  Report Type: Spontaneous
  Country: US (occurrence: None)
  Receive Date: 20131127
  Receipt Date: 20131127
  Transmission Date: 20140711
  Serious: Yes (Life-Threatening)
  Sender: FDA-Public Use
  Company Number: None

PATIENT
  Age: 59 Year
  Sex: Female
  Weight: 70.31 kg

DRUGS (1)
  1. ONGLYZA [Suspect]
     Indication: BLOOD GLUCOSE INCREASED
     Dosage: 1 TAB DAILY
     Dates: start: 20130729, end: 20131126

REACTIONS (8)
  - Swelling [None]
  - Dehydration [None]
  - Dry eye [None]
  - Palpitations [None]
  - Headache [None]
  - Tinnitus [None]
  - Sleep disorder [None]
  - Memory impairment [None]
